FAERS Safety Report 20158433 (Version 1)
Quarter: 2021Q4

REPORT INFORMATION
  Report Type: Spontaneous
  Country: US (occurrence: US)
  Receive Date: 20211207
  Receipt Date: 20211207
  Transmission Date: 20220303
  Serious: Yes (Other)
  Sender: FDA-Public Use
  Company Number: US-PRINSTON PHARMACEUTICAL INC.-2021PRN00419

PATIENT
  Age: 61 Year
  Sex: Male

DRUGS (1)
  1. DOXYCYCLINE HYCLATE [Suspect]
     Active Substance: DOXYCYCLINE HYCLATE
     Indication: Dermatomyositis
     Dosage: 100 MG, 1X/DAY
     Route: 065

REACTIONS (4)
  - Gastrointestinal injury [Recovered/Resolved]
  - Gastritis erosive [Recovered/Resolved]
  - Gastric ulcer [Recovered/Resolved]
  - Angiopathy [Recovered/Resolved]
